FAERS Safety Report 5283568-5 (Version None)
Quarter: 2007Q1

REPORT INFORMATION
  Report Type: 
  Country: None (occurrence: None)
  Receive Date: 20061226
  Receipt Date: 20061108
  Transmission Date: 20070707
  Serious: No
  Sender: FDA-Public Use
  Company Number: 2006PV024853

PATIENT
  Age: 42 Year
  Sex: Female
  Weight: 136.0791 kg

DRUGS (3)
  1. SYMLIN [Suspect]
     Indication: DIABETES MELLITUS NON-INSULIN-DEPENDENT
     Dosage: 30 MCG; TID; SC
     Route: 058
     Dates: start: 20061107
  2. NOVOLOG [Concomitant]
  3. LANTUS [Concomitant]

REACTIONS (1)
  - DRUG INEFFECTIVE [None]
